FAERS Safety Report 22067984 (Version 2)
Quarter: 2023Q1

REPORT INFORMATION
  Report Type: Spontaneous
  Country: TW (occurrence: TW)
  Receive Date: 20230307
  Receipt Date: 20230328
  Transmission Date: 20230417
  Serious: Yes (Death, Life-Threatening, Hospitalization, Other)
  Sender: FDA-Public Use
  Company Number: TW-BRISTOL-MYERS SQUIBB COMPANY-2023-021280

PATIENT
  Age: 85 Year
  Sex: Female
  Weight: 56.6 kg

DRUGS (3)
  1. OPDIVO [Suspect]
     Active Substance: NIVOLUMAB
     Indication: Gastric cancer
     Route: 042
     Dates: start: 20220323
  2. LEVOPHED [Suspect]
     Active Substance: NOREPINEPHRINE BITARTRATE
     Indication: Acute kidney injury
  3. FLUOROURACIL\LEUCOVORIN CALCIUM\OXALIPLATIN [Concomitant]
     Active Substance: FLUOROURACIL\LEUCOVORIN CALCIUM\OXALIPLATIN
     Indication: Gastric cancer

REACTIONS (18)
  - Immune-mediated lung disease [Fatal]
  - Prescribed underdose [Unknown]
  - Aspergillus infection [Unknown]
  - Pleural effusion [Unknown]
  - Cardiomegaly [Unknown]
  - Thyroid mass [Unknown]
  - Metastases to liver [Unknown]
  - Cholelithiasis [Unknown]
  - Renal cyst [Unknown]
  - Exostosis [Unknown]
  - Pulmonary arterial hypertension [Unknown]
  - Lymphadenopathy [Unknown]
  - Acute respiratory distress syndrome [Fatal]
  - Acute kidney injury [Unknown]
  - Hepatitis acute [Unknown]
  - Malignant neoplasm progression [Unknown]
  - Cytomegalovirus viraemia [Unknown]
  - Degenerative bone disease [Unknown]

NARRATIVE: CASE EVENT DATE: 20220323
